FAERS Safety Report 5005882-0 (Version None)
Quarter: 2006Q2

REPORT INFORMATION
  Report Type: 
  Country: None (occurrence: None)
  Receive Date: 20060517
  Receipt Date: 20060517
  Transmission Date: 20061013
  Serious: Yes (Hospitalization)
  Sender: FDA-Public Use
  Company Number: None

PATIENT
  Age: 72 Year
  Sex: Male

DRUGS (9)
  1. HYDROCHLOROTHIAZIDE [Suspect]
     Indication: HYPERTENSION
     Dosage: 12.5 QD
     Dates: start: 20060308
  2. LISINOPRIL [Suspect]
     Indication: HYPERTENSION
     Dosage: 40 MG QD
     Dates: start: 20051201
  3. ETODOLAC [Suspect]
     Indication: PAIN
     Dosage: 300 MG TID
     Dates: start: 20060217
  4. ALENDRONATE SODIUM [Concomitant]
  5. BACLOFEN [Concomitant]
  6. CARBAMAZEPINE [Concomitant]
  7. COLESTIPOL HCL [Concomitant]
  8. LORTAB [Concomitant]
  9. TAMSULOSIN HCL [Concomitant]

REACTIONS (1)
  - RENAL FAILURE ACUTE [None]
